FAERS Safety Report 4460514-5 (Version None)
Quarter: 2004Q3

REPORT INFORMATION
  Report Type: 
  Country: None (occurrence: None)
  Receive Date: 20040923
  Receipt Date: 20040915
  Transmission Date: 20050211
  Serious: Yes (Other)
  Sender: FDA-Public Use
  Company Number: HQWYE113817SEP04

PATIENT
  Age: 27 Year
  Sex: Female
  Weight: 68.1 kg

DRUGS (1)
  1. ADVIL [Suspect]
     Indication: DYSMENORRHOEA
     Dosage: TABLET 1X PER 1 DAY, ORAL
     Route: 048
     Dates: start: 20040913, end: 20040913

REACTIONS (2)
  - ASTHMA [None]
  - SWELLING FACE [None]
